FAERS Safety Report 24381802 (Version 1)
Quarter: 2024Q4

REPORT INFORMATION
  Report Type: Spontaneous
  Country: TN (occurrence: TN)
  Receive Date: 20241001
  Receipt Date: 20241001
  Transmission Date: 20250114
  Serious: Yes (Other)
  Sender: EPIC PHARM
  Company Number: TN-EPICPHARMA-TN-2024EPCLIT01139

PATIENT
  Age: 20 Year
  Sex: Male

DRUGS (1)
  1. LEVETIRACETAM [Suspect]
     Active Substance: LEVETIRACETAM
     Indication: Petit mal epilepsy
     Route: 065

REACTIONS (2)
  - Bipolar disorder [Recovering/Resolving]
  - Product use in unapproved indication [Unknown]
